FAERS Safety Report 6821133-6 (Version None)
Quarter: 2010Q3

REPORT INFORMATION
  Report Type: 
  Country: None (occurrence: None)
  Receive Date: 20100707
  Receipt Date: 20080201
  Transmission Date: 20110219
  Serious: No
  Sender: FDA-Public Use
  Company Number: US-PFIZER INC-2007092510

PATIENT
  Sex: Female

DRUGS (2)
  1. ZOLOFT [Suspect]
     Dates: start: 20070901
  2. WARFARIN SODIUM [Concomitant]

REACTIONS (2)
  - ANXIETY [None]
  - DRUG ADMINISTRATION ERROR [None]
